FAERS Safety Report 9101742 (Version 1)
Quarter: 2013Q1

REPORT INFORMATION
  Report Type: Spontaneous
  Country: US (occurrence: US)
  Receive Date: 20130218
  Receipt Date: 20130218
  Transmission Date: 20140127
  Serious: No
  Sender: FDA-Public Use
  Company Number: US-BAYER-2013-020321

PATIENT
  Age: 89 Year
  Sex: Female

DRUGS (15)
  1. COQ10 [Concomitant]
  2. LISINOPRIL [Concomitant]
  3. SIMVASTATIN [Concomitant]
  4. CELEBREX [Concomitant]
  5. ASPIRIN LOW [Concomitant]
     Dosage: 81 MG, UNK
  6. L-PHYROXINE [Concomitant]
  7. AMLODIPINE BESYLATE [Concomitant]
  8. OXYBUTYNIN CHLORIDE [Concomitant]
  9. ALEVE CAPLET/TABLET,MIDOL EXTENDED RELIEF CAPLET [Suspect]
     Dosage: 1 DF, BID
     Route: 048
     Dates: start: 20130203
  10. ZINC [Concomitant]
     Dosage: 25 MG, UNK
  11. VITAMIN C [Concomitant]
     Dosage: 500 MG, UNK
  12. CENTRUM [MINERALS NOS,VITAMINS NOS] [Concomitant]
  13. CALTRATE WITH VITAMIN D [Concomitant]
  14. CRANBERRY [Concomitant]
  15. VITAMIN B12 NOS [Concomitant]

REACTIONS (1)
  - Insomnia [Recovered/Resolved]
